FAERS Safety Report 6539664-5 (Version None)
Quarter: 2010Q1

REPORT INFORMATION
  Report Type: 
  Country: None (occurrence: None)
  Receive Date: 20100112
  Receipt Date: 20091230
  Transmission Date: 20100710
  Serious: Yes (Hospitalization)
  Sender: FDA-Public Use
  Company Number: 2009-5267

PATIENT
  Sex: Female

DRUGS (1)
  1. APOKYN [Suspect]
     Indication: PARKINSON'S DISEASE
     Dosage: 0.3 ML

REACTIONS (5)
  - AMNESIA [None]
  - INTESTINAL OBSTRUCTION [None]
  - INTRAOCULAR LENS IMPLANT [None]
  - PAIN IN EXTREMITY [None]
  - RETINAL DETACHMENT [None]
